FAERS Safety Report 12717947 (Version 2)
Quarter: 2016Q4

REPORT INFORMATION
  Report Type: Report from Study
  Country: PL (occurrence: PL)
  Receive Date: 20160906
  Receipt Date: 20161012
  Transmission Date: 20170207
  Serious: Yes (Other)
  Sender: FDA-Public Use
  Company Number: PL-PFIZER INC-2016413307

PATIENT
  Sex: Male

DRUGS (7)
  1. EPIRUBICIN HCL [Suspect]
     Active Substance: EPIRUBICIN HYDROCHLORIDE
     Indication: GENITOURINARY TRACT NEOPLASM
     Dosage: UNK
  2. VINCRISTINE [Suspect]
     Active Substance: VINCRISTINE
     Indication: GENITOURINARY TRACT NEOPLASM
     Dosage: UNK
  3. ACTINOMYCIN D [Suspect]
     Active Substance: DACTINOMYCIN
     Indication: GENITOURINARY TRACT NEOPLASM
     Dosage: UNK
  4. ETOPOSIDE. [Suspect]
     Active Substance: ETOPOSIDE
     Indication: GENITOURINARY TRACT NEOPLASM
     Dosage: UNK
  5. CARBOPLATIN. [Suspect]
     Active Substance: CARBOPLATIN
     Indication: GENITOURINARY TRACT NEOPLASM
     Dosage: UNK
  6. DOXORUBICIN HCL [Suspect]
     Active Substance: DOXORUBICIN HYDROCHLORIDE
     Indication: GENITOURINARY TRACT NEOPLASM
     Dosage: UNK
  7. IFOSFAMIDE. [Suspect]
     Active Substance: IFOSFAMIDE
     Indication: GENITOURINARY TRACT NEOPLASM
     Dosage: UNK

REACTIONS (2)
  - Bone marrow failure [Unknown]
  - Polyneuropathy [Unknown]
